FAERS Safety Report 14444652 (Version 1)
Quarter: 2018Q1

REPORT INFORMATION
  Report Type: Spontaneous
  Country: CH (occurrence: CH)
  Receive Date: 20180126
  Receipt Date: 20180126
  Transmission Date: 20180509
  Serious: Yes (Hospitalization)
  Sender: FDA-Public Use
  Company Number: CH-BAYER-2018-009763

PATIENT
  Age: 64 Year
  Sex: Male

DRUGS (33)
  1. ASPIRIN CARDIO 100 MG [Suspect]
     Active Substance: ASPIRIN
     Dosage: 100 MG, QD
     Route: 048
     Dates: start: 20171212, end: 20171213
  2. POTASSIUM CHLORIDE. [Concomitant]
     Active Substance: POTASSIUM CHLORIDE
     Dosage: UNK
     Dates: start: 20171226, end: 20171227
  3. LORAZEPAM. [Concomitant]
     Active Substance: LORAZEPAM
     Dosage: 1 MG, QD
     Dates: start: 20171213
  4. NYSTATINE [Concomitant]
     Dates: start: 20171213
  5. FLUCONAZOLE. [Concomitant]
     Active Substance: FLUCONAZOLE
     Dates: start: 20171229
  6. ONDANSETRON [Concomitant]
     Active Substance: ONDANSETRON
     Dates: start: 20171222, end: 20180103
  7. IDARUBICIN [Concomitant]
     Active Substance: IDARUBICIN
     Dosage: UNK
     Route: 042
     Dates: start: 20171222, end: 20171224
  8. LORAZEPAM. [Concomitant]
     Active Substance: LORAZEPAM
     Dosage: 1 MG, QD
     Dates: start: 20171218
  9. CEFEPIME [Concomitant]
     Active Substance: CEFEPIME HYDROCHLORIDE
     Dates: start: 20171229
  10. HEPARIN [Suspect]
     Active Substance: HEPARIN SODIUM
     Dosage: 10000 IU, QD
     Dates: start: 20171222
  11. VANCOMYCIN [Concomitant]
     Active Substance: VANCOMYCIN
     Dates: start: 20171231
  12. CYTARABINE. [Suspect]
     Active Substance: CYTARABINE
     Dosage: 364 MG, QD
     Route: 041
     Dates: start: 20171222, end: 20171228
  13. CALCIUM GLUCONATE. [Concomitant]
     Active Substance: CALCIUM GLUCONATE
     Dates: start: 20171222
  14. APREPITANT. [Concomitant]
     Active Substance: APREPITANT
     Dates: start: 20171222, end: 20180102
  15. VALACICLOVIR [Suspect]
     Active Substance: VALACYCLOVIR HYDROCHLORIDE
     Dosage: 500 MG, QD
     Route: 048
     Dates: start: 20171213
  16. ALLOPURINOL. [Suspect]
     Active Substance: ALLOPURINOL
     Dosage: 300 MG, QD
     Route: 048
     Dates: start: 20171213, end: 20171226
  17. AMOXICILLIN SODIUM W/CLAVULANATE POTASSIUM [Suspect]
     Active Substance: AMOXICILLIN\CLAVULANATE POTASSIUM
     Dosage: 1 G 1X/8H
     Route: 048
     Dates: start: 20171213, end: 20171218
  18. THIAMINE. [Concomitant]
     Active Substance: THIAMINE
     Dates: start: 20171212, end: 20171230
  19. MORPHINE [Concomitant]
     Active Substance: MORPHINE
     Dosage: 3 MG + 2 MG
     Route: 058
     Dates: start: 20171213, end: 20171213
  20. CALCIUM WITH VITAMIN D [Concomitant]
     Active Substance: CALCIUM\VITAMIN D
     Dates: start: 20171220
  21. ESOMEPRAZOLE [Concomitant]
     Active Substance: ESOMEPRAZOLE
     Dates: start: 20171226
  22. MOMETASONE [Concomitant]
     Active Substance: MOMETASONE
     Dates: start: 20180103
  23. FUROSEMIDE. [Suspect]
     Active Substance: FUROSEMIDE
     Dosage: 20 MG, QD
     Route: 041
     Dates: start: 20171222, end: 20171225
  24. COTRIMOXAZOLE [Suspect]
     Active Substance: SULFAMETHOXAZOLE\TRIMETHOPRIM
     Dosage: 160 MG, UNK
     Route: 048
     Dates: start: 20171213
  25. HEPARIN [Suspect]
     Active Substance: HEPARIN SODIUM
     Dosage: 7500 IU, QD
     Route: 041
     Dates: start: 20171220, end: 20171222
  26. GLUCOSE [Concomitant]
     Active Substance: DEXTROSE
     Dates: start: 20171222, end: 20171230
  27. TORASEMIDE [Concomitant]
     Active Substance: TORSEMIDE
     Dosage: UNK
     Dates: start: 20111223, end: 20171229
  28. TORASEMIDE [Concomitant]
     Active Substance: TORSEMIDE
     Dosage: 1 DF, UNK
     Dates: start: 20171217
  29. ASPIRIN CARDIO 100 MG [Suspect]
     Active Substance: ASPIRIN
     Dosage: 100 MG, QD
     Route: 048
     Dates: start: 20171216, end: 20171220
  30. PHYTOMENADIONE [Concomitant]
     Active Substance: PHYTONADIONE
     Dates: start: 20171213, end: 20171215
  31. OXAZEPAM. [Concomitant]
     Active Substance: OXAZEPAM
     Dates: start: 20171213, end: 20171229
  32. TORASEMIDE [Concomitant]
     Active Substance: TORSEMIDE
     Dosage: 5 MG, UNK
     Dates: start: 20171222
  33. AMLODIPINE [Concomitant]
     Active Substance: AMLODIPINE BESYLATE
     Dates: start: 20180103

REACTIONS (2)
  - Purpura [Recovering/Resolving]
  - Thrombocytopenia [Recovering/Resolving]

NARRATIVE: CASE EVENT DATE: 20171226
